FAERS Safety Report 20987640 (Version 1)
Quarter: 2022Q2

REPORT INFORMATION
  Report Type: Spontaneous
  Country: US (occurrence: None)
  Receive Date: 20220617
  Receipt Date: 20220617
  Transmission Date: 20220720
  Serious: No
  Sender: FDA-Public Use
  Company Number: None

PATIENT
  Age: 34 Year
  Sex: Female

DRUGS (2)
  1. LISINOPRIL [Suspect]
     Active Substance: LISINOPRIL
     Indication: Product used for unknown indication
  2. LISINOPRIL [Concomitant]
     Active Substance: LISINOPRIL
     Dates: start: 20210820

REACTIONS (5)
  - Urticaria [None]
  - Urticaria [None]
  - Photosensitivity reaction [None]
  - Rash [None]
  - Skin induration [None]

NARRATIVE: CASE EVENT DATE: 20220603
